FAERS Safety Report 9695090 (Version 1)
Quarter: 2013Q4

REPORT INFORMATION
  Report Type: Spontaneous
  Country: CY (occurrence: CY)
  Receive Date: 20131119
  Receipt Date: 20131119
  Transmission Date: 20140711
  Serious: Yes (Disabling, Other)
  Sender: FDA-Public Use
  Company Number: PHHY2013CY130707

PATIENT
  Sex: Male
  Weight: 67 kg

DRUGS (2)
  1. EXJADE [Suspect]
     Indication: THALASSAEMIA BETA
     Dosage: 2750 MG, DAILY (41MG/KG)
     Route: 048
     Dates: start: 20071112, end: 20130905
  2. EXJADE [Suspect]
     Dosage: 1000 MG, DAILY
     Route: 048
     Dates: start: 20130919

REACTIONS (4)
  - Cardiac failure [Recovering/Resolving]
  - Blood creatinine increased [Recovering/Resolving]
  - Proteinuria [Recovering/Resolving]
  - Creatinine renal clearance decreased [Recovering/Resolving]
